FAERS Safety Report 8240905 (Version 5)
Quarter: 2013Q3

REPORT INFORMATION
  Report Type: Report from Study
  Country: CA (occurrence: CA)
  Receive Date: 20111111
  Receipt Date: 20130726
  Transmission Date: 20140515
  Serious: Yes (Death, Life-Threatening, Other)
  Sender: FDA-Public Use
  Company Number: CA-CELGENEUS-028-C5013-11103530

PATIENT
  Age: 71 Year
  Sex: Male
  Weight: 69.5 kg

DRUGS (17)
  1. THALIDOMIDE [Suspect]
     Indication: PLASMA CELL MYELOMA
     Dosage: 200 MILLIGRAM
     Route: 048
     Dates: start: 20101112
  2. THALIDOMIDE [Suspect]
     Dosage: 200 MILLIGRAM
     Route: 048
     Dates: start: 20110902, end: 20110930
  3. THALIDOMIDE [Suspect]
     Dosage: 200 MILLIGRAM
     Route: 048
     Dates: end: 20111028
  4. MELPHALAN [Suspect]
     Indication: PLASMA CELL MYELOMA
     Dosage: 8 MILLIGRAM
     Route: 065
     Dates: start: 20101112
  5. MELPHALAN [Suspect]
     Dosage: 2 MILLIGRAM
     Route: 065
     Dates: start: 20110902, end: 20110905
  6. MELPHALAN [Suspect]
     Dosage: 2 MILLIGRAM
     Route: 065
     Dates: end: 20111028
  7. PREDNISONE [Suspect]
     Indication: PLASMA CELL MYELOMA
     Dosage: 140 MILLIGRAM
     Route: 065
     Dates: start: 20101112
  8. PREDNISONE [Suspect]
     Dosage: 150 MILLIGRAM
     Route: 065
     Dates: start: 20110902, end: 20110905
  9. PREDNISONE [Suspect]
     Dosage: 150 MILLIGRAM
     Route: 065
     Dates: end: 20111028
  10. HYDROMORPHONE [Concomitant]
     Indication: PAIN
     Dosage: 24 MILLIGRAM
     Route: 048
     Dates: start: 20110506, end: 20111128
  11. FRAGMIN [Concomitant]
     Indication: THROMBOSIS
     Dosage: 12.5 IU (INTERNATIONAL UNIT)
     Route: 058
     Dates: start: 20111014, end: 20111128
  12. KEFLEX [Concomitant]
     Indication: CELLULITIS
     Dosage: 2000 MILLIGRAM
     Route: 048
     Dates: start: 20111013, end: 20111128
  13. G-CSF [Concomitant]
     Indication: BLOOD GROWTH HORMONE
     Dosage: 300 MICROGRAM
     Route: 058
     Dates: start: 20111003, end: 20111007
  14. TAMSULOSIN [Concomitant]
     Indication: BENIGN PROSTATIC HYPERPLASIA
     Dosage: .4 MILLIGRAM
     Route: 048
     Dates: start: 2007, end: 20111128
  15. AVODART [Concomitant]
     Indication: BENIGN PROSTATIC HYPERPLASIA
     Dosage: .5 MILLIGRAM
     Route: 048
     Dates: start: 2008, end: 20111128
  16. CODEINE ELIXIR [Concomitant]
     Indication: COUGH
     Dosage: 5 MILLIGRAM
     Route: 048
     Dates: start: 20111021, end: 20111128
  17. RITALIN [Concomitant]
     Indication: MOOD ALTERED
     Dosage: 20 MILLIGRAM
     Route: 048
     Dates: start: 20111021, end: 20111028

REACTIONS (2)
  - Death [Fatal]
  - Lung cancer metastatic [Not Recovered/Not Resolved]
